FAERS Safety Report 22193250 (Version 3)
Quarter: 2023Q4

REPORT INFORMATION
  Report Type: Spontaneous
  Country: CA (occurrence: CA)
  Receive Date: 20230410
  Receipt Date: 20231017
  Transmission Date: 20240110
  Serious: Yes (Hospitalization, Other)
  Sender: FDA-Public Use
  Company Number: CA-PFIZER INC-202201204700

PATIENT
  Age: 35 Year
  Sex: Female

DRUGS (4)
  1. RUXIENCE [Suspect]
     Active Substance: RITUXIMAB-PVVR
     Indication: Rheumatoid arthritis
     Dosage: 1000 MG, DAY 15 SINGLE DOSE
     Route: 042
     Dates: start: 20221011, end: 20221011
  2. RUXIENCE [Suspect]
     Active Substance: RITUXIMAB-PVVR
     Dosage: 1000 MG
     Route: 042
     Dates: start: 20221011, end: 20221011
  3. RUXIENCE [Suspect]
     Active Substance: RITUXIMAB-PVVR
     Dosage: 1000 MG, DAY 1
     Route: 042
     Dates: start: 20220926, end: 20220926
  4. RUXIENCE [Suspect]
     Active Substance: RITUXIMAB-PVVR
     Dosage: 1000 MG, DAY1 AND15
     Route: 042
     Dates: start: 20230614, end: 20230628

REACTIONS (7)
  - Cellulitis [Not Recovered/Not Resolved]
  - Laryngitis [Unknown]
  - Spleen disorder [Unknown]
  - Urticaria [Not Recovered/Not Resolved]
  - Wheelchair user [Unknown]
  - Gait inability [Not Recovered/Not Resolved]
  - Infected skin ulcer [Not Recovered/Not Resolved]

NARRATIVE: CASE EVENT DATE: 20230101
